FAERS Safety Report 4356296-8 (Version None)
Quarter: 2004Q2

REPORT INFORMATION
  Report Type: 
  Country: None (occurrence: None)
  Receive Date: 20040510
  Receipt Date: 20040510
  Transmission Date: 20050107
  Serious: Yes (Life-Threatening, Hospitalization)
  Sender: FDA-Public Use
  Company Number: None

PATIENT
  Age: 77 Year
  Sex: Male
  Weight: 69.9 kg

DRUGS (3)
  1. WARFARIN SODIUM [Suspect]
  2. PAROXETINE HCL [Suspect]
  3. IRON (NIFEREX) CAP, ORAL [Suspect]
     Dosage: 150 MG PO
     Route: 048
     Dates: start: 20031016, end: 20031019

REACTIONS (1)
  - DRUG TOXICITY [None]
